FAERS Safety Report 7830736-1 (Version None)
Quarter: 2011Q4

REPORT INFORMATION
  Report Type: 
  Country: None (occurrence: None)
  Receive Date: 20111021
  Receipt Date: 20111017
  Transmission Date: 20120403
  Serious: Yes (Hospitalization, Other)
  Sender: FDA-Public Use
  Company Number: US-ABBOTT-11P-163-0866374-00

PATIENT
  Sex: Female
  Weight: 59.928 kg

DRUGS (1)
  1. HUMIRA [Suspect]
     Indication: ANKYLOSING SPONDYLITIS
     Dates: start: 20100501, end: 20100601

REACTIONS (9)
  - RESPIRATORY DISORDER [None]
  - INJECTION SITE SWELLING [None]
  - CYSTITIS INTERSTITIAL [None]
  - EYE SWELLING [None]
  - THROAT IRRITATION [None]
  - CELLULITIS [None]
  - DEVICE FAILURE [None]
  - LOCAL SWELLING [None]
  - ORAL DISCOMFORT [None]
